FAERS Safety Report 5511962-3 (Version None)
Quarter: 2007Q4

REPORT INFORMATION
  Report Type: 
  Country: None (occurrence: None)
  Receive Date: 20071109
  Receipt Date: 20071030
  Transmission Date: 20080405
  Serious: Yes (Other)
  Sender: FDA-Public Use
  Company Number: CA-MERCK-0701CAN00049

PATIENT
  Age: 72 Year
  Sex: Female

DRUGS (3)
  1. FOSAMAX [Suspect]
     Route: 048
     Dates: start: 19960901
  2. RISEDRONATE SODIUM [Concomitant]
     Route: 065
  3. [THERAPY UNSPECIFIED] [Concomitant]
     Route: 065

REACTIONS (37)
  - ABDOMINAL PAIN [None]
  - ABDOMINAL PAIN UPPER [None]
  - ABSCESS [None]
  - ANXIETY [None]
  - ATELECTASIS [None]
  - BLINDNESS UNILATERAL [None]
  - BONE DISORDER [None]
  - BONE PAIN [None]
  - BURSITIS [None]
  - CATARACT [None]
  - CONFUSIONAL STATE [None]
  - CYSTITIS [None]
  - DEPRESSION [None]
  - DRUG HYPERSENSITIVITY [None]
  - FACIAL PALSY [None]
  - FALL [None]
  - FEMUR FRACTURE [None]
  - GASTRIC DISORDER [None]
  - GLAUCOMA [None]
  - GROIN PAIN [None]
  - HELICOBACTER GASTRITIS [None]
  - HIP FRACTURE [None]
  - HYDRONEPHROSIS [None]
  - HYPOAESTHESIA [None]
  - IMPAIRED SELF-CARE [None]
  - ORAL DYSAESTHESIA [None]
  - OSTEOMYELITIS [None]
  - RADIUS FRACTURE [None]
  - SCOLIOSIS [None]
  - SKIN LESION [None]
  - SPINAL COLUMN STENOSIS [None]
  - SPONDYLOLISTHESIS [None]
  - SYNOVIAL CYST [None]
  - TOOTH DISORDER [None]
  - TOOTH EXTRACTION [None]
  - ULNA FRACTURE [None]
  - WRIST FRACTURE [None]
